FAERS Safety Report 11436548 (Version 1)
Quarter: 2015Q3

REPORT INFORMATION
  Report Type: Spontaneous
  Country: US (occurrence: US)
  Receive Date: 20150821
  Receipt Date: 20150821
  Transmission Date: 20151125
  Serious: No
  Sender: FDA-Public Use
  Company Number: US-ELI_LILLY_AND_COMPANY-US201406002236

PATIENT
  Age: 52 Year
  Sex: Male

DRUGS (9)
  1. CIALIS [Suspect]
     Active Substance: TADALAFIL
     Indication: ERECTILE DYSFUNCTION
     Dosage: 10 MG, PRN
     Route: 065
     Dates: start: 2011
  2. CIALIS [Suspect]
     Active Substance: TADALAFIL
     Dosage: 20 MG, PRN
     Route: 065
     Dates: start: 2013
  3. ASPIRIN. [Concomitant]
     Active Substance: ASPIRIN
     Dosage: UNK, PRN
  4. CIALIS [Suspect]
     Active Substance: TADALAFIL
     Dosage: 5 MG, QD
     Route: 065
     Dates: start: 2014
  5. TESTOSTERONE CIPIONATE [Concomitant]
     Active Substance: TESTOSTERONE
  6. CRESTOR [Concomitant]
     Active Substance: ROSUVASTATIN CALCIUM
  7. AMINO ACID [Concomitant]
  8. ZINC [Concomitant]
     Active Substance: ZINC\ZINC CHLORIDE
  9. POTASSIUM [Concomitant]
     Active Substance: POTASSIUM

REACTIONS (4)
  - Intentional product misuse [Unknown]
  - Blood pressure increased [Unknown]
  - Drug ineffective [Unknown]
  - Haematospermia [Unknown]
